FAERS Safety Report 8349604-4 (Version None)
Quarter: 2012Q2

REPORT INFORMATION
  Report Type: 
  Country: None (occurrence: None)
  Receive Date: 20120510
  Receipt Date: 20120502
  Transmission Date: 20120825
  Serious: Yes (Hospitalization, Other)
  Sender: FDA-Public Use
  Company Number: US-BAYER-2011-107971

PATIENT
  Age: 25 Year
  Sex: Female

DRUGS (17)
  1. ZOFRAN [Concomitant]
     Route: 042
  2. ANTIBIOTICS [Concomitant]
     Route: 042
  3. DIFLUCAN [Concomitant]
     Dosage: 150 MG EVERY OTHER DAY FOR 2 DAYS
     Route: 048
     Dates: start: 20090414
  4. SODIUM CHLORIDE [Concomitant]
     Route: 042
  5. CEPHALEXIN [Concomitant]
     Dosage: 500 MG, DAILY
     Route: 048
  6. MAGNESIUM HYDROXIDE TAB [Concomitant]
  7. LORCET-HD [Concomitant]
  8. YAZ [Suspect]
     Indication: CONTRACEPTION
     Dosage: UNK
     Route: 048
     Dates: start: 20020101, end: 20110101
  9. NUBAIN [Concomitant]
     Route: 042
  10. KEFLEX [Concomitant]
  11. HYDROCODONE BITARTRATE [Concomitant]
  12. MILK OF MAGNESIA TAB [Concomitant]
  13. MAGNESIUM CITRATE [Concomitant]
  14. PEPTO [Concomitant]
  15. MYLANTA [Concomitant]
  16. IMODIUM [Concomitant]
  17. ASPIRIN [Concomitant]
     Dosage: 6 %, UNK
     Route: 061
     Dates: start: 20090401

REACTIONS (15)
  - CHOLECYSTITIS ACUTE [None]
  - CHOLECYSTECTOMY [None]
  - SCAR [None]
  - BILE DUCT STONE [None]
  - PAIN [None]
  - DYSPEPSIA [None]
  - ABDOMINAL DISTENSION [None]
  - ANXIETY [None]
  - PULMONARY EMBOLISM [None]
  - DIARRHOEA [None]
  - DEPRESSION [None]
  - FLATULENCE [None]
  - DEEP VEIN THROMBOSIS [None]
  - CONSTIPATION [None]
  - ANHEDONIA [None]
